FAERS Safety Report 9133789 (Version 1)
Quarter: 2013Q1

REPORT INFORMATION
  Report Type: Spontaneous
  Country: IT (occurrence: IT)
  Receive Date: 20130303
  Receipt Date: 20130303
  Transmission Date: 20140127
  Serious: Yes (Hospitalization)
  Sender: FDA-Public Use
  Company Number: IT-TEVA-388691ISR

PATIENT
  Age: 54 Year
  Sex: Male

DRUGS (3)
  1. METFORMIN [Suspect]
     Dosage: 2550 MILLIGRAM DAILY;
     Route: 048
     Dates: start: 20120113, end: 20130112
  2. HUMALOG [Suspect]
     Dosage: 10 IU (INTERNATIONAL UNIT) DAILY;
     Route: 058
     Dates: start: 20120113, end: 20130112
  3. HUMALOG BASAL [Suspect]
     Dosage: 6 IU (INTERNATIONAL UNIT) DAILY;
     Route: 058
     Dates: start: 20120113, end: 20130112

REACTIONS (1)
  - Hypoglycaemic coma [Recovering/Resolving]
